FAERS Safety Report 4264328-0 (Version None)
Quarter: 2004Q1

REPORT INFORMATION
  Report Type: 
  Country: None (occurrence: None)
  Receive Date: 20040106
  Receipt Date: 20040106
  Transmission Date: 20041129
  Serious: Yes (Other)
  Sender: FDA-Public Use
  Company Number: None

PATIENT
  Sex: Male
  Weight: 73.0291 kg

DRUGS (24)
  1. TERIPARATIDE 750MCG/ 3ML LILLY [Suspect]
     Indication: OSTEOPOROSIS
     Dosage: 20 MCG QD SUBCUTANEOUS
     Route: 058
     Dates: start: 20031028, end: 20031031
  2. ASPIRIN [Concomitant]
  3. CALCIPOTRIENE [Concomitant]
  4. CALCIUM 500MG/VITAMIN D [Concomitant]
  5. CLOBETASOL PROPIONATE [Concomitant]
  6. FLUOCINOLONE ACETONIDE [Concomitant]
  7. FLUOCINONIDE [Concomitant]
  8. GEMFIBROZIL [Concomitant]
  9. HYDROCODONE 5/ ACETAMINOPHEN [Concomitant]
  10. IBUPROFEN [Concomitant]
  11. LANSOPRAZOLE [Concomitant]
  12. LEVETIRACETAM [Concomitant]
  13. METHOCARBAMOL [Concomitant]
  14. NITROGLYCERIN [Concomitant]
  15. PAROXETINE HCL [Concomitant]
  16. RISPERIDONE [Concomitant]
  17. SENNOSIDES [Concomitant]
  18. SULFASALAZINE [Concomitant]
  19. TERAZOSIN HCL [Concomitant]
  20. TESTOSTERONE [Concomitant]
  21. TRAZODONE HCL [Concomitant]
  22. TRIAMCINOLONE ACETONIDE [Concomitant]
  23. ZOLPIDEM TARTRATE [Concomitant]
  24. METFORMIN HCL [Concomitant]

REACTIONS (5)
  - ABDOMINAL DISCOMFORT [None]
  - ABDOMINAL PAIN [None]
  - FREQUENT BOWEL MOVEMENTS [None]
  - PAIN IN EXTREMITY [None]
  - RENAL PAIN [None]
